FAERS Safety Report 8990300 (Version 1)
Quarter: 2012Q4

REPORT INFORMATION
  Report Type: 
  Country: CA (occurrence: CA)
  Receive Date: 20121228
  Receipt Date: 20121228
  Transmission Date: 20130627
  Serious: Yes (Hospitalization, Other)
  Sender: FDA-Public Use
  Company Number: CA-009507513-1212CAN010928

PATIENT
  Age: 68 Year
  Sex: Male

DRUGS (1)
  1. BCG LIVE [Suspect]
     Indication: BLADDER CANCER STAGE 0, WITH CANCER IN SITU

REACTIONS (2)
  - Psoas abscess [Recovered/Resolved]
  - Aortic aneurysm rupture [Recovered/Resolved]
